FAERS Safety Report 15901908 (Version 2)
Quarter: 2020Q3

REPORT INFORMATION
  Report Type: Spontaneous
  Country: US (occurrence: US)
  Receive Date: 20190201
  Receipt Date: 20200903
  Transmission Date: 20201102
  Serious: No
  Sender: FDA-Public Use
  Company Number: US-ELI_LILLY_AND_COMPANY-US201901015221

PATIENT
  Age: 60 Year
  Sex: Female

DRUGS (7)
  1. COLLAGEN [Concomitant]
     Active Substance: COLLAGEN
     Indication: OSTEOPOROSIS
  2. VITAMIN K [Concomitant]
     Active Substance: PHYTONADIONE
     Indication: OSTEOPOROSIS
  3. SYNTHROID [Concomitant]
     Active Substance: LEVOTHYROXINE SODIUM
     Indication: THYROID DISORDER
  4. CALCIUM [Concomitant]
     Active Substance: CALCIUM
     Indication: OSTEOPOROSIS
  5. FORTEO [Suspect]
     Active Substance: TERIPARATIDE
     Indication: OSTEOPOROSIS
     Dosage: UNK UNK, UNKNOWN
     Route: 058
     Dates: start: 201808
  6. POTASSIUM [Concomitant]
     Active Substance: POTASSIUM
     Indication: OSTEOPOROSIS
  7. VITAMIN D NOS [Concomitant]
     Active Substance: VITAMIN D NOS
     Indication: OSTEOPOROSIS

REACTIONS (7)
  - Rhinorrhoea [Recovering/Resolving]
  - Sleep disorder due to general medical condition, insomnia type [Unknown]
  - Fatigue [Unknown]
  - Muscle spasms [Unknown]
  - Spinal column injury [Unknown]
  - Bone density decreased [Unknown]
  - Pruritus [Unknown]

NARRATIVE: CASE EVENT DATE: 201808
